FAERS Safety Report 12424590 (Version 1)
Quarter: 2016Q2

REPORT INFORMATION
  Report Type: Spontaneous
  Country: FR (occurrence: FR)
  Receive Date: 20160601
  Receipt Date: 20160601
  Transmission Date: 20160815
  Serious: Yes (Hospitalization)
  Sender: FDA-Public Use
  Company Number: FR-PFIZER INC-2016277478

PATIENT
  Age: 71 Year
  Sex: Male

DRUGS (13)
  1. RAMIPRIL. [Concomitant]
     Active Substance: RAMIPRIL
     Dosage: 1.25 MG, 1X/DAY (MORNING)
  2. NOVONORM [Concomitant]
     Active Substance: REPAGLINIDE
     Dosage: 0.5 MG  IN THE MORNING, 1 MG AT NOON AND IN THE EVENING
  3. PLAVIX [Concomitant]
     Active Substance: CLOPIDOGREL BISULFATE
     Dosage: 75 MG, 1X/DAY (MORNING)
  4. LERCANIDIPINE [Concomitant]
     Active Substance: LERCANIDIPINE
     Dosage: 20 MG, 1X/DAY (MORNING)
  5. AMIKACIN [Concomitant]
     Active Substance: AMIKACIN
     Dosage: 1.2 G, DAILY
     Dates: start: 20160423, end: 20160423
  6. AMIKACIN [Concomitant]
     Active Substance: AMIKACIN
     Dosage: 1.2 G, DAILY
     Dates: start: 20160503, end: 20160503
  7. DIGOXIN. [Concomitant]
     Active Substance: DIGOXIN
     Dosage: 0.25 MG, 1X/DAY (MORNING)
  8. MOPRAL /00661201/ [Concomitant]
     Active Substance: OMEPRAZOLE SODIUM
     Dosage: 1 DF, 1X/DAY (MORNING)
  9. VANCOMYCIN [Concomitant]
     Active Substance: VANCOMYCIN
     Indication: ANTIBIOTIC THERAPY
     Dosage: 1 G, DAILY
     Dates: start: 20160419, end: 20160425
  10. TAZOCILLINE [Suspect]
     Active Substance: PIPERACILLIN SODIUM\TAZOBACTAM SODIUM
     Indication: INFECTION
     Dosage: 4 G, 2X/DAY
     Dates: start: 20160419, end: 20160503
  11. KAYEXALATE [Concomitant]
     Active Substance: SODIUM POLYSTYRENE SULFONATE
     Dosage: 1 DF, 1X/DAY (1 MEASURING SPOON, MORNING)
  12. TAHOR [Concomitant]
     Active Substance: ATORVASTATIN CALCIUM
     Dosage: 40 MG, 1X/DAY (MORNING)
  13. INSULIN [Concomitant]
     Active Substance: INSULIN NOS

REACTIONS (2)
  - Agranulocytosis [Recovered/Resolved]
  - General physical health deterioration [Recovering/Resolving]

NARRATIVE: CASE EVENT DATE: 20160502
